FAERS Safety Report 4526544-X (Version None)
Quarter: 2004Q4

REPORT INFORMATION
  Report Type: 
  Country: None (occurrence: None)
  Receive Date: 20041210
  Receipt Date: 20041110
  Transmission Date: 20050328
  Serious: Yes (Hospitalization)
  Sender: FDA-Public Use
  Company Number: 2004091442

PATIENT
  Age: 68 Year
  Sex: Female
  Weight: 58 kg

DRUGS (2)
  1. BEXTRA [Suspect]
     Indication: LOCALISED OSTEOARTHRITIS
     Dosage: 20 MG (20 MG, 1 IN D), ORAL
     Route: 048
     Dates: start: 20041003, end: 20041020
  2. AMLODIPINE BESYLATE [Concomitant]

REACTIONS (1)
  - RASH MACULO-PAPULAR [None]
